FAERS Safety Report 6788200-7 (Version None)
Quarter: 2010Q2

REPORT INFORMATION
  Report Type: 
  Country: None (occurrence: None)
  Receive Date: 20100623
  Receipt Date: 20080107
  Transmission Date: 20101027
  Serious: No
  Sender: FDA-Public Use
  Company Number: US-PFIZER INC-2008002299

PATIENT
  Sex: Female
  Weight: 44.5 kg

DRUGS (3)
  1. COLESTID [Suspect]
     Indication: DIARRHOEA
     Dates: start: 20070401
  2. LEVOXYL [Concomitant]
  3. AMBIEN [Concomitant]

REACTIONS (5)
  - DIZZINESS [None]
  - DRUG INEFFECTIVE FOR UNAPPROVED INDICATION [None]
  - GASTROENTERITIS [None]
  - RASH PRURITIC [None]
  - VISUAL IMPAIRMENT [None]
